FAERS Safety Report 8059483-0 (Version None)
Quarter: 2011Q4

REPORT INFORMATION
  Report Type: 
  Country: None (occurrence: None)
  Receive Date: 20111220
  Receipt Date: 20110709
  Transmission Date: 20120403
  Serious: Yes (Hospitalization)
  Sender: FDA-Public Use
  Company Number: PHHY2010US45579

PATIENT
  Age: 24 Year
  Sex: Male
  Weight: 50 kg

DRUGS (13)
  1. PREDNISONE TAB [Concomitant]
  2. OMEPRAZOLE [Concomitant]
  3. VICODIN [Concomitant]
  4. ASPIRIN [Concomitant]
  5. METOPROLOL TARTRATE [Concomitant]
  6. NEURONTIN [Concomitant]
  7. BACTRIM (SULFAMETHOXAZOLES, TRIMETHOPRIM) [Concomitant]
  8. MYFORTIC [Suspect]
     Indication: RENAL TRANSPLANT
     Dosage: 540 MG,  ORAL
     Route: 048
     Dates: start: 20100215
  9. MYFORTIC [Suspect]
     Indication: PROPHYLAXIS AGAINST TRANSPLANT REJECTION
     Dosage: 540 MG,  ORAL
     Route: 048
     Dates: start: 20100215
  10. AMLODIPINE [Concomitant]
  11. PROPRANOLOL [Concomitant]
  12. DILTIAZEM HYDROCHLORIDE [Concomitant]
  13. PROGRAF [Concomitant]

REACTIONS (1)
  - URINARY TRACT INFECTION [None]
